FAERS Safety Report 13370805 (Version 3)
Quarter: 2017Q2

REPORT INFORMATION
  Report Type: Report from Study
  Country: FR (occurrence: FR)
  Receive Date: 20170324
  Receipt Date: 20170418
  Transmission Date: 20170830
  Serious: Yes (Death, Life-Threatening, Hospitalization, Congenital Anomaly, Other)
  Sender: FDA-Public Use
  Company Number: FR-BRISTOL-MYERS SQUIBB COMPANY-BMS-2017-021836

PATIENT
  Sex: Female

DRUGS (4)
  1. ATAZANAVIR SULFATE [Suspect]
     Active Substance: ATAZANAVIR SULFATE
     Indication: PRODUCT USED FOR UNKNOWN INDICATION
     Dosage: 300 MG, QD
     Route: 064
     Dates: start: 20160526, end: 20161207
  2. KIVEXA [Suspect]
     Active Substance: ABACAVIR SULFATE\LAMIVUDINE
     Indication: PRODUCT USED FOR UNKNOWN INDICATION
     Dosage: UNK DF, UNK
     Route: 064
     Dates: start: 20160526, end: 20161207
  3. NORVIR [Suspect]
     Active Substance: RITONAVIR
     Indication: PRODUCT USED FOR UNKNOWN INDICATION
     Dosage: 100 MG, QD
     Route: 064
     Dates: start: 20160526, end: 20161207
  4. TRIUMEQ [Suspect]
     Active Substance: ABACAVIR SULFATE\DOLUTEGRAVIR SODIUM\LAMIVUDINE
     Indication: PRODUCT USED FOR UNKNOWN INDICATION
     Dosage: 1 DF, QD
     Route: 064
     Dates: start: 20151029, end: 20160526

REACTIONS (14)
  - Foetal exposure during pregnancy [Unknown]
  - Pseudomonas infection [Fatal]
  - Pulmonary arterial hypertension [Unknown]
  - Gram stain negative [Unknown]
  - Cardiac hypertrophy [Unknown]
  - Foetal growth restriction [Fatal]
  - Dysmorphism [Not Recovered/Not Resolved]
  - Pericardial effusion [Unknown]
  - Hypotonia neonatal [Unknown]
  - Haemodynamic instability [Fatal]
  - Respiratory failure [Fatal]
  - Lung disorder [Unknown]
  - Hypoxia [Unknown]
  - Inflammation [Unknown]

NARRATIVE: CASE EVENT DATE: 20160630
